FAERS Safety Report 5943291-8 (Version None)
Quarter: 2008Q4

REPORT INFORMATION
  Report Type: 
  Country: None (occurrence: None)
  Receive Date: 20081106
  Receipt Date: 20081027
  Transmission Date: 20090506
  Serious: Yes (Hospitalization, Other)
  Sender: FDA-Public Use
  Company Number: PHHY2008DK26473

PATIENT
  Sex: Female

DRUGS (2)
  1. GYNERGEN COMP. [Suspect]
  2. VERALOC [Concomitant]

REACTIONS (13)
  - ARTERIAL BYPASS OPERATION [None]
  - ARTERIAL INSUFFICIENCY [None]
  - ARTERIAL STENOSIS [None]
  - ARTERIOSCLEROSIS [None]
  - BLINDNESS [None]
  - HEADACHE [None]
  - HYPOAESTHESIA [None]
  - INCOHERENT [None]
  - PAIN IN EXTREMITY [None]
  - PERIPHERAL ISCHAEMIA [None]
  - SURGERY [None]
  - VASCULAR GRAFT [None]
  - VOMITING [None]
